FAERS Safety Report 26162760 (Version 1)
Quarter: 2025Q4

REPORT INFORMATION
  Report Type: Spontaneous
  Country: US (occurrence: None)
  Receive Date: 20251215
  Receipt Date: 20251215
  Transmission Date: 20260117
  Serious: Yes (Other)
  Sender: FDA-CTU
  Company Number: None

PATIENT
  Age: 41 Year
  Sex: Female
  Weight: 85 kg

DRUGS (2)
  1. IRON SUCROSE [Suspect]
     Active Substance: IRON SUCROSE
     Indication: Iron deficiency anaemia
     Dosage: OTHER FREQUENCY : ONCE;
     Route: 041
     Dates: start: 20251120, end: 20251120
  2. IRON SUCROSE [Concomitant]
     Active Substance: IRON SUCROSE
     Dates: start: 20251120, end: 20251120

REACTIONS (4)
  - Infusion related reaction [None]
  - Abdominal pain [None]
  - Arthralgia [None]
  - Joint stiffness [None]

NARRATIVE: CASE EVENT DATE: 20251120
